FAERS Safety Report 4900131-3 (Version None)
Quarter: 2006Q1

REPORT INFORMATION
  Report Type: 
  Country: None (occurrence: None)
  Receive Date: 20060203
  Receipt Date: 20051014
  Transmission Date: 20060701
  Serious: Yes (Hospitalization)
  Sender: FDA-Public Use
  Company Number: AU-BRISTOL-MYERS SQUIBB COMPANY-13144415

PATIENT
  Age: 72 Year
  Sex: Female

DRUGS (19)
  1. CETUXIMAB [Suspect]
     Indication: COLORECTAL CANCER METASTATIC
     Dosage: INITIAL TX DATE: 23-SEP-05.  DOSE DELAYED/OMITTED.
     Route: 042
     Dates: start: 20051007, end: 20051007
  2. IRINOTECAN HCL [Suspect]
     Indication: COLORECTAL CANCER METASTATIC
     Dosage: DOSE DELAYED/OMITTED.
     Route: 042
     Dates: start: 20050923, end: 20050923
  3. GENTAMICIN [Concomitant]
     Route: 042
     Dates: start: 20051001, end: 20051001
  4. GENTAMICIN [Concomitant]
     Route: 042
     Dates: start: 20051002, end: 20051007
  5. AMPICILLIN SODIUM [Concomitant]
     Route: 048
     Dates: start: 20051002, end: 20051002
  6. CEFEPIME HCL [Concomitant]
     Route: 042
     Dates: start: 20051001, end: 20051001
  7. CEFEPIME HCL [Concomitant]
     Route: 042
     Dates: start: 20051002, end: 20051008
  8. CHLORVESCENT [Concomitant]
     Route: 048
     Dates: start: 20051004, end: 20051004
  9. CIPROFLOXACIN [Concomitant]
     Route: 048
     Dates: start: 20051009, end: 20051013
  10. CODEINE PHOSPHATE [Concomitant]
     Route: 048
     Dates: start: 20050930, end: 20051002
  11. DICLOFENAC [Concomitant]
     Route: 048
     Dates: start: 20050101, end: 20051013
  12. HYDROCORTISONE [Concomitant]
     Route: 042
     Dates: start: 20051002, end: 20051002
  13. METFORMIN HCL [Concomitant]
     Route: 048
     Dates: start: 20010101, end: 20051013
  14. METOCLOPRAMIDE [Concomitant]
     Route: 048
     Dates: start: 20050926
  15. NITROFURANTOIN [Concomitant]
     Route: 048
     Dates: start: 20051002, end: 20051008
  16. NITROFURANTOIN [Concomitant]
     Route: 048
     Dates: start: 20051009, end: 20051013
  17. PARACETAMOL [Concomitant]
     Route: 048
     Dates: start: 20050930
  18. PHENERGAN [Concomitant]
     Route: 042
     Dates: start: 20051002, end: 20051002
  19. TRIMETHOPRIM [Concomitant]
     Route: 048
     Dates: start: 20050930, end: 20051001

REACTIONS (1)
  - RENAL FAILURE [None]
